FAERS Safety Report 9595239 (Version 2)
Quarter: 2013Q4

REPORT INFORMATION
  Report Type: Spontaneous
  Country: US (occurrence: US)
  Receive Date: 20131004
  Receipt Date: 20131004
  Transmission Date: 20140711
  Serious: No
  Sender: FDA-Public Use
  Company Number: US-PURDUE-USA-2012-0092655

PATIENT
  Age: 49 Year
  Sex: Female

DRUGS (1)
  1. BUTRANS [Suspect]
     Indication: PAIN
     Dosage: 5 MCG, 1/WEEK
     Route: 062
     Dates: start: 20120813, end: 20120815

REACTIONS (2)
  - Oesophageal pain [Recovered/Resolved]
  - Abdominal discomfort [Recovered/Resolved]
